FAERS Safety Report 9977236 (Version 1)
Quarter: 2014Q1

REPORT INFORMATION
  Report Type: Report from Study
  Country: US (occurrence: US)
  Receive Date: 20140306
  Receipt Date: 20140306
  Transmission Date: 20141002
  Serious: No
  Sender: FDA-Public Use
  Company Number: US-ABBVIE-13P-163-1165074-00

PATIENT
  Age: 24 Year
  Sex: Female

DRUGS (4)
  1. HUMIRA [Suspect]
     Indication: CROHN^S DISEASE
     Dosage: 160MG ON 19 OCT 2013
     Dates: start: 20131019
  2. AMETHIA [Concomitant]
     Indication: CONTRACEPTION
  3. IMODIUM [Concomitant]
     Indication: DIARRHOEA
  4. ADVIL [Concomitant]
     Indication: PAIN

REACTIONS (2)
  - Injection site bruising [Recovered/Resolved]
  - Injection site pain [Recovered/Resolved]
